FAERS Safety Report 8728287 (Version 2)
Quarter: 2012Q4

REPORT INFORMATION
  Report Type: 
  Country: NL (occurrence: NL)
  Receive Date: 20120817
  Receipt Date: 20120904
  Transmission Date: 20130627
  Serious: No
  Sender: FDA-Public Use
  Company Number: NL-ELI_LILLY_AND_COMPANY-NL201208004155

PATIENT
  Sex: Male

DRUGS (4)
  1. CYMBALTA [Suspect]
     Dosage: 30 mg, UNK
  2. CYMBALTA [Suspect]
     Dosage: 60 mg, UNK
  3. METOPROLOL [Concomitant]
     Indication: BLOOD PRESSURE INCREASED
  4. LOSARTAN                           /01121602/ [Concomitant]

REACTIONS (2)
  - Alanine aminotransferase increased [Recovering/Resolving]
  - Aspartate aminotransferase increased [Recovering/Resolving]
